FAERS Safety Report 12917420 (Version 2)
Quarter: 2017Q1

REPORT INFORMATION
  Report Type: Report from Study
  Country: US (occurrence: US)
  Receive Date: 20161107
  Receipt Date: 20170105
  Transmission Date: 20170428
  Serious: Yes (Hospitalization)
  Sender: FDA-Public Use
  Company Number: US-ACTELION-A-US2016-133870

PATIENT
  Age: 43 Year
  Sex: Female

DRUGS (3)
  1. VELETRI [Suspect]
     Active Substance: EPOPROSTENOL
     Indication: PULMONARY ARTERIAL HYPERTENSION
     Dosage: 51.1 NG/KG, PER MIN
     Route: 042
     Dates: start: 20120802
  2. COUMADIN [Concomitant]
     Active Substance: WARFARIN SODIUM
  3. LETAIRIS [Concomitant]
     Active Substance: AMBRISENTAN

REACTIONS (8)
  - Skin infection [Unknown]
  - Diarrhoea [Unknown]
  - Catheter site swelling [Unknown]
  - Catheter site cellulitis [Unknown]
  - Catheter site haematoma [Unknown]
  - Thrombosis [Unknown]
  - Catheter site pain [Unknown]
  - Device malfunction [Unknown]
